FAERS Safety Report 20199114 (Version 1)
Quarter: 2021Q4

REPORT INFORMATION
  Report Type: Spontaneous
  Country: US (occurrence: None)
  Receive Date: 20211217
  Receipt Date: 20211217
  Transmission Date: 20220303
  Serious: Yes (Other)
  Sender: FDA-Public Use
  Company Number: None

PATIENT
  Age: 44 Year
  Sex: Female
  Weight: 102 kg

DRUGS (3)
  1. BAMLANIVIMAB\ETESEVIMAB [Suspect]
     Active Substance: BAMLANIVIMAB\ETESEVIMAB
     Indication: COVID-19
     Dates: start: 20211216, end: 20211216
  2. Tylenol 650mg PO X 1 [Concomitant]
     Dates: start: 20211216, end: 20211216
  3. Benadryl 50mg PO X 1 [Concomitant]
     Dates: start: 20211216, end: 20211216

REACTIONS (5)
  - Dizziness [None]
  - Tremor [None]
  - Flushing [None]
  - Feeling hot [None]
  - Infusion related reaction [None]

NARRATIVE: CASE EVENT DATE: 20211216
